FAERS Safety Report 7270717-2 (Version None)
Quarter: 2011Q1

REPORT INFORMATION
  Report Type: 
  Country: None (occurrence: None)
  Receive Date: 20110202
  Receipt Date: 20101210
  Transmission Date: 20110831
  Serious: Yes (Other)
  Sender: FDA-Public Use
  Company Number: B0697021A

PATIENT
  Age: 45 Year
  Sex: Female

DRUGS (1)
  1. ACITRETIN [Suspect]
     Indication: NAIL PSORIASIS
     Dosage: 50MG PER DAY
     Route: 048

REACTIONS (1)
  - PYOGENIC GRANULOMA [None]
